FAERS Safety Report 6280661-5 (Version None)
Quarter: 2009Q3

REPORT INFORMATION
  Report Type: 
  Country: None (occurrence: None)
  Receive Date: 20090724
  Receipt Date: 20081110
  Transmission Date: 20100115
  Serious: No
  Sender: FDA-Public Use
  Company Number: A0755835A

PATIENT
  Sex: Female

DRUGS (1)
  1. AVANDIA [Suspect]
     Indication: DRUG USE FOR UNKNOWN INDICATION
     Route: 065
     Dates: start: 20081015

REACTIONS (2)
  - CONDITION AGGRAVATED [None]
  - VISUAL IMPAIRMENT [None]
